FAERS Safety Report 4556586-X (Version None)
Quarter: 2005Q1

REPORT INFORMATION
  Report Type: 
  Country: None (occurrence: None)
  Receive Date: 20050114
  Receipt Date: 20041222
  Transmission Date: 20050727
  Serious: Yes (Hospitalization)
  Sender: FDA-Public Use
  Company Number: 207698

PATIENT
  Age: 52 Year
  Sex: Male
  Weight: 56 kg

DRUGS (3)
  1. BEVACIZUMAB (BEVACIZUMAB)PWDR + SOLVENT, INFUSION SOLN, 100 MG [Suspect]
     Indication: LIP AND/OR ORAL CAVITY CANCER
     Dosage: 15 MG/KG, Q3W, INTRAVENOUS
     Route: 042
     Dates: start: 20040420, end: 20040504
  2. ERLOTINIB (ERLOTINIB)TABLET [Suspect]
     Indication: LIP AND/OR ORAL CAVITY CANCER
     Dosage: 150 MG, QD, ORAL
     Route: 048
     Dates: start: 20040420
  3. METHOTREXATE [Suspect]
     Indication: LIP AND/OR ORAL CAVITY CANCER

REACTIONS (3)
  - DISEASE PROGRESSION [None]
  - MUCOSAL INFLAMMATION [None]
  - OESOPHAGITIS [None]
